FAERS Safety Report 5997755-1 (Version None)
Quarter: 2008Q4

REPORT INFORMATION
  Report Type: 
  Country: None (occurrence: None)
  Receive Date: 20081212
  Receipt Date: 20081120
  Transmission Date: 20090506
  Serious: No
  Sender: FDA-Public Use
  Company Number: US-ABBOTT-08P-163-0488865-00

PATIENT
  Sex: Male

DRUGS (2)
  1. HUMIRA [Suspect]
     Indication: RHEUMATOID ARTHRITIS
     Route: 058
     Dates: start: 20080701, end: 20081001
  2. HUMIRA [Suspect]
     Route: 058
     Dates: start: 20081001

REACTIONS (2)
  - DRUG EFFECT DECREASED [None]
  - NASOPHARYNGITIS [None]
